FAERS Safety Report 25996812 (Version 1)
Quarter: 2025Q4

REPORT INFORMATION
  Report Type: Spontaneous
  Country: US (occurrence: US)
  Receive Date: 20251104
  Receipt Date: 20251104
  Transmission Date: 20260118
  Serious: Yes (Death, Other)
  Sender: SANOFI AVENTIS
  Company Number: US-SA-2025SA326019

PATIENT
  Age: 88 Year
  Sex: Female

DRUGS (1)
  1. LANTUS SOLOSTAR [Suspect]
     Active Substance: INSULIN GLARGINE
     Indication: Blood glucose increased
     Dosage: 30 IU, QD
     Route: 058
     Dates: start: 20250221

REACTIONS (3)
  - Cardiac failure [Fatal]
  - Dementia [Fatal]
  - Renal disorder [Fatal]

NARRATIVE: CASE EVENT DATE: 20250804
